FAERS Safety Report 10205317 (Version 1)
Quarter: 2014Q2

REPORT INFORMATION
  Report Type: Spontaneous
  Country: US (occurrence: US)
  Receive Date: 20140529
  Receipt Date: 20140529
  Transmission Date: 20141212
  Serious: No
  Sender: FDA-Public Use
  Company Number: US-SA-2014SA039599

PATIENT
  Age: 57 Year
  Sex: Male

DRUGS (2)
  1. LANTUS SOLOSTAR [Suspect]
     Indication: TYPE 2 DIABETES MELLITUS
     Dosage: DOSE:55 UNIT(S)
     Route: 065
     Dates: start: 2013
  2. SOLOSTAR [Concomitant]
     Dates: start: 2013

REACTIONS (4)
  - Injection site haemorrhage [Unknown]
  - Injection site haematoma [Unknown]
  - Injection site swelling [Unknown]
  - Drug dose omission [Unknown]
